FAERS Safety Report 6174296-2 (Version None)
Quarter: 2009Q2

REPORT INFORMATION
  Report Type: 
  Country: None (occurrence: None)
  Receive Date: 20090430
  Receipt Date: 20080505
  Transmission Date: 20091009
  Serious: No
  Sender: FDA-Public Use
  Company Number: US-ASTRAZENECA-2008UW09253

PATIENT
  Sex: Female

DRUGS (2)
  1. NEXIUM [Suspect]
     Route: 048
     Dates: start: 20080502
  2. CIPROFLOXACIN HCL [Interacting]

REACTIONS (2)
  - ABDOMINAL PAIN [None]
  - DRUG INTERACTION [None]
